FAERS Safety Report 6058398-7 (Version None)
Quarter: 2009Q1

REPORT INFORMATION
  Report Type: 
  Country: None (occurrence: None)
  Receive Date: 20090127
  Receipt Date: 20090114
  Transmission Date: 20090719
  Serious: Yes (Hospitalization)
  Sender: FDA-Public Use
  Company Number: JHP200900001

PATIENT

DRUGS (2)
  1. DANTRIUM [Suspect]
     Dosage: , ORAL
     Route: 048
  2. LIORESAL [Suspect]

REACTIONS (1)
  - MUSCLE RIGIDITY [None]
